FAERS Safety Report 9321420 (Version 1)
Quarter: 2013Q2

REPORT INFORMATION
  Report Type: Spontaneous
  Country: CA (occurrence: None)
  Receive Date: 20130528
  Receipt Date: 20130528
  Transmission Date: 20140414
  Serious: Yes (Hospitalization)
  Sender: FDA-Public Use
  Company Number: CA-011822

PATIENT
  Age: 82 Year
  Sex: Male

DRUGS (1)
  1. DEGARELIX [Suspect]
     Indication: PROSTATE CANCER
     Dosage: (80 MG 1X/MONTH SUBCUTANEOUS)
     Route: 058
     Dates: start: 20120727

REACTIONS (7)
  - Ligament sprain [None]
  - Localised infection [None]
  - Nausea [None]
  - Dizziness [None]
  - Feeling cold [None]
  - Malaise [None]
  - Injection site coldness [None]
